FAERS Safety Report 6194516-8 (Version None)
Quarter: 2009Q2

REPORT INFORMATION
  Report Type: 
  Country: None (occurrence: None)
  Receive Date: 20090519
  Receipt Date: 20090511
  Transmission Date: 20091009
  Serious: Yes (Other)
  Sender: FDA-Public Use
  Company Number: TR-JNJFOC-20090503631

PATIENT
  Age: 54 Year
  Sex: Female

DRUGS (3)
  1. TOPAMAX [Suspect]
     Indication: MIGRAINE PROPHYLAXIS
     Route: 048
  2. DIDERAL [Concomitant]
  3. PERINDOPRIL ERBUMINE [Concomitant]

REACTIONS (1)
  - UVEITIS [None]
